FAERS Safety Report 8539712-7 (Version None)
Quarter: 2012Q3

REPORT INFORMATION
  Report Type: 
  Country: None (occurrence: None)
  Receive Date: 20120726
  Receipt Date: 20110830
  Transmission Date: 20120928
  Serious: No
  Sender: FDA-Public Use
  Company Number: US-ASTRAZENECA-2010SE23550

PATIENT
  Age: 69 Year
  Sex: Female
  Weight: 56.7 kg

DRUGS (5)
  1. SEROQUEL [Suspect]
     Route: 048
     Dates: start: 20100101, end: 20100101
  2. CYMBALTA [Concomitant]
  3. CRESTOR [Suspect]
     Route: 048
  4. PAIN MEDICATION [Concomitant]
  5. SEROQUEL [Suspect]
     Indication: HYPOMANIA
     Route: 048

REACTIONS (4)
  - SWOLLEN TONGUE [None]
  - MUSCLE SPASMS [None]
  - PARAESTHESIA [None]
  - TARDIVE DYSKINESIA [None]
